FAERS Safety Report 14374547 (Version 1)
Quarter: 2018Q1

REPORT INFORMATION
  Report Type: Spontaneous
  Country: DE (occurrence: DE)
  Receive Date: 20180111
  Receipt Date: 20180111
  Transmission Date: 20180509
  Serious: Yes (Hospitalization)
  Sender: FDA-Public Use
  Company Number: DE-SUN PHARMACEUTICAL INDUSTRIES LTD-2018R1-159683

PATIENT
  Age: 19 Year
  Sex: Female

DRUGS (27)
  1. ABILIFY [Interacting]
     Active Substance: ARIPIPRAZOLE
     Dosage: 10 MILLIGRAM
     Route: 048
     Dates: start: 20110115
  2. HALDOL [Interacting]
     Active Substance: HALOPERIDOL
     Dosage: 6 MG, QD
     Route: 048
     Dates: start: 20101229, end: 20110104
  3. LORAZEPAM. [Concomitant]
     Active Substance: LORAZEPAM
     Dosage: 0.5 MILLIGRAM
     Route: 065
     Dates: start: 20110118, end: 20110121
  4. QUETIAPIN AL [Concomitant]
     Indication: PRODUCT USED FOR UNKNOWN INDICATION
     Dosage: 100 MILLIGRAM
     Route: 065
     Dates: start: 20110126
  5. ABILIFY [Interacting]
     Active Substance: ARIPIPRAZOLE
     Dosage: 5 MILLIGRAM
     Route: 048
     Dates: start: 20110205
  6. SOLIAN [Interacting]
     Active Substance: AMISULPRIDE
     Dosage: 400 MG, DAILY
     Route: 048
     Dates: start: 20110111, end: 20110117
  7. QUETIAPIN AL [Concomitant]
     Dosage: 50 MILLIGRAM
     Route: 065
     Dates: start: 20110125
  8. LORAZEPAM. [Concomitant]
     Active Substance: LORAZEPAM
     Indication: PRODUCT USED FOR UNKNOWN INDICATION
     Dosage: 1 DF, UNK 2.0
     Route: 065
     Dates: start: 20101226
  9. QUETIAPINE. [Concomitant]
     Active Substance: QUETIAPINE
     Indication: PRODUCT USED FOR UNKNOWN INDICATION
     Dosage: 1 DF, DAILY
     Route: 065
     Dates: start: 20110125
  10. ABILIFY [Interacting]
     Active Substance: ARIPIPRAZOLE
     Indication: PRODUCT USED FOR UNKNOWN INDICATION
     Dosage: 10 MILLIGRAM
     Route: 048
     Dates: start: 20110128, end: 20110204
  11. BIPERIDEN [Concomitant]
     Active Substance: BIPERIDEN
     Indication: PRODUCT USED FOR UNKNOWN INDICATION
     Dosage: 4 MG, DAILY
     Route: 048
     Dates: start: 20110104, end: 20110131
  12. CITALOPRAM [Suspect]
     Active Substance: CITALOPRAM HYDROBROMIDE
     Indication: PRODUCT USED FOR UNKNOWN INDICATION
     Dosage: 40 MG, DAILY
     Route: 048
     Dates: start: 20110110, end: 20110205
  13. CITALOPRAM [Interacting]
     Active Substance: CITALOPRAM HYDROBROMIDE
     Dosage: 20 MG, DAILY
     Route: 048
     Dates: start: 20101229, end: 20110109
  14. CITALOPRAM [Interacting]
     Active Substance: CITALOPRAM HYDROBROMIDE
     Indication: PRODUCT USED FOR UNKNOWN INDICATION
     Dosage: UNK UNK, QD
     Route: 048
  15. ABILIFY [Interacting]
     Active Substance: ARIPIPRAZOLE
     Dosage: 15 MILLIGRAM
     Route: 048
     Dates: start: 20110118, end: 20110127
  16. LORAZEPAM. [Concomitant]
     Active Substance: LORAZEPAM
     Indication: PRODUCT USED FOR UNKNOWN INDICATION
     Dosage: 2 MILLIGRAM
     Route: 065
     Dates: start: 20101226
  17. HALDOL [Interacting]
     Active Substance: HALOPERIDOL
     Dosage: 6 MG, DAILY
     Route: 048
     Dates: start: 20101226
  18. HALDOL [Interacting]
     Active Substance: HALOPERIDOL
     Dosage: 6 MG, QD
     Route: 048
     Dates: start: 20101226
  19. SOLIAN [Interacting]
     Active Substance: AMISULPRIDE
     Dosage: 100 MG, DAILY
     Route: 048
     Dates: start: 20110122, end: 20110125
  20. LORAZEPAM. [Concomitant]
     Active Substance: LORAZEPAM
     Dosage: 1.5 MILLIGRAM
     Route: 065
     Dates: start: 20101229
  21. LORAZEPAM. [Concomitant]
     Active Substance: LORAZEPAM
     Dosage: 1 MILLIGRAM
     Route: 065
     Dates: start: 20110104, end: 20110117
  22. CITALOPRAM [Interacting]
     Active Substance: CITALOPRAM HYDROBROMIDE
     Dosage: 10 MG, DAILY
     Route: 048
     Dates: start: 20101226
  23. ABILIFY [Interacting]
     Active Substance: ARIPIPRAZOLE
     Dosage: 5 MILLIGRAM
     Route: 048
     Dates: start: 20110112
  24. SOLIAN [Interacting]
     Active Substance: AMISULPRIDE
     Dosage: 300 MG, DAILY
     Route: 048
     Dates: start: 20110118
  25. HALDOL [Interacting]
     Active Substance: HALOPERIDOL
     Indication: PRODUCT USED FOR UNKNOWN INDICATION
     Dosage: 6 MG, DAILY
     Route: 048
     Dates: start: 20101229, end: 20110104
  26. SOLIAN [Interacting]
     Active Substance: AMISULPRIDE
     Indication: PRODUCT USED FOR UNKNOWN INDICATION
     Dosage: 200 MG, DAILY; DAILY DOSE: 200 MG MILLIGRAM(S) EVERY DAY
     Route: 048
     Dates: start: 20110119, end: 20110121
  27. SOLIAN [Interacting]
     Active Substance: AMISULPRIDE
     Dosage: 100 MG, DAILY
     Route: 048
     Dates: start: 20110104, end: 20110110

REACTIONS (3)
  - Drug interaction [Unknown]
  - Extrapyramidal disorder [Unknown]
  - Tremor [Recovering/Resolving]

NARRATIVE: CASE EVENT DATE: 20110104
